FAERS Safety Report 8779922 (Version 1)
Quarter: 2012Q4

REPORT INFORMATION
  Report Type: 
  Country: US (occurrence: US)
  Receive Date: 20120912
  Receipt Date: 20120912
  Transmission Date: 20130627
  Serious: No
  Sender: FDA-Public Use
  Company Number: US-VERTEX PHARMACEUTICAL INC.-AE-2012-006252

PATIENT

DRUGS (8)
  1. INCIVEK [Suspect]
     Indication: HEPATITIS C
     Route: 048
     Dates: start: 20120409, end: 20120703
  2. PEGASYS [Concomitant]
     Indication: HEPATITIS C
     Route: 058
     Dates: start: 20120409
  3. RIBAVIRIN [Concomitant]
     Indication: HEPATITIS C
     Route: 048
     Dates: start: 20120409
  4. INDERAL [Concomitant]
     Indication: PAIN
     Route: 048
  5. LEVOTHYROXINE [Concomitant]
     Indication: THYROID DISORDER
     Route: 048
  6. AMBIEN [Concomitant]
     Indication: SLEEP DISORDER
     Route: 048
  7. ABILIFY [Concomitant]
     Indication: DEPRESSION
     Route: 048
  8. POTASSIUM [Concomitant]
     Indication: MEDICAL DIET

REACTIONS (8)
  - Weight increased [Not Recovered/Not Resolved]
  - White blood cell count decreased [Not Recovered/Not Resolved]
  - Agitation [Not Recovered/Not Resolved]
  - Dizziness [Recovered/Resolved]
  - Injection site reaction [Not Recovered/Not Resolved]
  - Oedema peripheral [Recovered/Resolved]
  - Fatigue [Not Recovered/Not Resolved]
  - Red blood cell count decreased [Not Recovered/Not Resolved]
